FAERS Safety Report 5890435-2 (Version None)
Quarter: 2008Q3

REPORT INFORMATION
  Report Type: 
  Country: None (occurrence: None)
  Receive Date: 20080921
  Receipt Date: 20080912
  Transmission Date: 20090109
  Serious: Yes (Other)
  Sender: FDA-Public Use
  Company Number: GB-BAUSCH-2008BL003882

PATIENT
  Age: 44 Year
  Sex: Male

DRUGS (6)
  1. PREDNISOLONE [Suspect]
     Indication: DRUG USE FOR UNKNOWN INDICATION
  2. PREDNISOLONE [Suspect]
     Indication: HIV INFECTION
  3. AZATHIOPRINE [Suspect]
     Indication: GLOMERULONEPHRITIS
  4. EFAVIRENZ [Suspect]
     Indication: HIV INFECTION
  5. EMTRICITABINE [Suspect]
     Indication: HIV INFECTION
  6. LOPINAVIR [Suspect]

REACTIONS (2)
  - OSTEOMYELITIS [None]
  - SALMONELLOSIS [None]
